FAERS Safety Report 25819697 (Version 2)
Quarter: 2025Q3

REPORT INFORMATION
  Report Type: Spontaneous
  Country: CN (occurrence: CN)
  Receive Date: 20250918
  Receipt Date: 20250924
  Transmission Date: 20251020
  Serious: Yes (Life-Threatening)
  Sender: BRACCO
  Company Number: CN-BRACCO-2025CN06354

PATIENT
  Age: 62 Year
  Sex: Female

DRUGS (1)
  1. IOMERON [Suspect]
     Active Substance: IOMEPROL
     Indication: Computerised tomogram thorax
     Route: 042
     Dates: start: 20250910, end: 20250910

REACTIONS (3)
  - Hyperhidrosis [Recovered/Resolved]
  - Hypotension [Recovered/Resolved]
  - Muscular weakness [Recovered/Resolved]

NARRATIVE: CASE EVENT DATE: 20250910
